FAERS Safety Report 8141995-2 (Version None)
Quarter: 2012Q1

REPORT INFORMATION
  Report Type: 
  Country: None (occurrence: None)
  Receive Date: 20120216
  Receipt Date: 20120207
  Transmission Date: 20120608
  Serious: Yes (Hospitalization)
  Sender: FDA-Public Use
  Company Number: CZ-PFIZER INC-2012039814

PATIENT
  Age: 42 Year
  Sex: Male

DRUGS (4)
  1. AMIODARONE HYDROCHLORIDE [Suspect]
     Indication: VENTRICULAR TACHYARRHYTHMIA
     Dosage: UNK
     Route: 042
     Dates: start: 20110301
  2. METOPROLOL TARTRATE [Suspect]
     Indication: VENTRICULAR TACHYARRHYTHMIA
     Dosage: UNK, DAILY
     Route: 048
     Dates: start: 20110301
  3. PERINDOPRIL [Concomitant]
     Dosage: UNK
     Dates: start: 20081001
  4. AMIODARONE HCL [Suspect]
     Indication: VENTRICULAR TACHYARRHYTHMIA
     Dosage: UNK
     Route: 048
     Dates: end: 20110801

REACTIONS (2)
  - BRUGADA SYNDROME [None]
  - ARRHYTHMIA [None]
